FAERS Safety Report 23520189 (Version 1)
Quarter: 2024Q1

REPORT INFORMATION
  Report Type: Other
  Country: AT (occurrence: AT)
  Receive Date: 20240214
  Receipt Date: 20240214
  Transmission Date: 20240409
  Serious: Yes (Hospitalization)
  Sender: FDA-Public Use
  Company Number: AT-Bion-012595

PATIENT
  Age: 31 Year
  Sex: Female

DRUGS (1)
  1. AZITHROMYCIN [Suspect]
     Active Substance: AZITHROMYCIN
     Indication: Tularaemia

REACTIONS (2)
  - Jarisch-Herxheimer reaction [Recovering/Resolving]
  - Exposure during pregnancy [Unknown]
